FAERS Safety Report 11058284 (Version 1)
Quarter: 2015Q2

REPORT INFORMATION
  Report Type: Spontaneous
  Country: US (occurrence: None)
  Receive Date: 20150420
  Receipt Date: 20150420
  Transmission Date: 20150821
  Serious: Yes (Death)
  Sender: FDA-Public Use
  Company Number: AEGR001154

PATIENT
  Age: 62 Year
  Sex: Female
  Weight: 73.5 kg

DRUGS (3)
  1. JUXTAPID [Suspect]
     Active Substance: LOMITAPIDE MESYLATE
     Indication: TYPE IIA HYPERLIPIDAEMIA
     Route: 048
     Dates: start: 20150113
  2. FIORICET (BUTALBITAL CAFFEINE, PARACETAMOL) [Concomitant]
  3. CRESTOR [Concomitant]
     Active Substance: ROSUVASTATIN CALCIUM

REACTIONS (9)
  - Eructation [None]
  - Flatulence [None]
  - Constipation [None]
  - Faeces discoloured [None]
  - Frequent bowel movements [None]
  - Faeces hard [None]
  - Dysphagia [None]
  - Drug administration error [None]
  - Drug dose omission [None]

NARRATIVE: CASE EVENT DATE: 20150120
